FAERS Safety Report 7156797-3 (Version None)
Quarter: 2010Q4

REPORT INFORMATION
  Report Type: 
  Country: None (occurrence: None)
  Receive Date: 20101214
  Receipt Date: 20101129
  Transmission Date: 20110411
  Serious: No
  Sender: FDA-Public Use
  Company Number: US-PFIZER INC-2010161664

PATIENT
  Age: 46 Year
  Sex: Female
  Weight: 60.317 kg

DRUGS (2)
  1. ADVIL [Suspect]
     Dosage: UNK
     Route: 048
     Dates: start: 20101108
  2. ALCOHOL [Suspect]
     Dosage: UNK
     Route: 048
     Dates: start: 20101107

REACTIONS (1)
  - DRUG SCREEN FALSE POSITIVE [None]
